FAERS Safety Report 19570480 (Version 1)
Quarter: 2021Q3

REPORT INFORMATION
  Report Type: Report from Study
  Country: DE (occurrence: DE)
  Receive Date: 20210716
  Receipt Date: 20210716
  Transmission Date: 20211014
  Serious: Yes (Other)
  Sender: FDA-Public Use
  Company Number: DE-MYLANLABS-2021M1042456

PATIENT
  Sex: Female
  Weight: 44 kg

DRUGS (2)
  1. LETROZOLE. [Suspect]
     Active Substance: LETROZOLE
     Indication: BREAST CANCER METASTATIC
     Dosage: 2.5 MG/M2, QD
     Route: 048
     Dates: start: 20200731
  2. KISQALI [Suspect]
     Active Substance: RIBOCICLIB
     Indication: BREAST CANCER METASTATIC
     Dosage: 600 MG, QD (SCHEME 21 DAYS INTAKE, 7 DAYS PAUSE)
     Route: 048
     Dates: start: 20200818

REACTIONS (5)
  - Urinary tract infection [Recovered/Resolved]
  - Abdominal distension [Not Recovered/Not Resolved]
  - Onychoclasis [Not Recovered/Not Resolved]
  - Bartholin^s abscess [Recovered/Resolved]
  - Dyspepsia [Not Recovered/Not Resolved]

NARRATIVE: CASE EVENT DATE: 202009
